FAERS Safety Report 6924859-9 (Version None)
Quarter: 2010Q3

REPORT INFORMATION
  Report Type: 
  Country: None (occurrence: None)
  Receive Date: 20100816
  Receipt Date: 20100802
  Transmission Date: 20110219
  Serious: Yes (Hospitalization, Other)
  Sender: FDA-Public Use
  Company Number: US-CELGENEUS-163-21880-10071808

PATIENT
  Sex: Female

DRUGS (3)
  1. REVLIMID [Suspect]
     Indication: MULTIPLE MYELOMA
     Route: 048
     Dates: start: 20090526, end: 20100205
  2. REVLIMID [Suspect]
     Route: 048
     Dates: start: 20100717
  3. COUMADIN [Suspect]
     Route: 065

REACTIONS (5)
  - ANAEMIA [None]
  - FATIGUE [None]
  - FULL BLOOD COUNT DECREASED [None]
  - RECTAL HAEMORRHAGE [None]
  - VAGINAL HAEMORRHAGE [None]
